FAERS Safety Report 7423519-8 (Version None)
Quarter: 2011Q2

REPORT INFORMATION
  Report Type: 
  Country: None (occurrence: None)
  Receive Date: 20110419
  Receipt Date: 20110407
  Transmission Date: 20111010
  Serious: Yes (Hospitalization)
  Sender: FDA-Public Use
  Company Number: PHHY2011US12322

PATIENT
  Sex: Female

DRUGS (8)
  1. ISOSORBIDE DINITRATE [Concomitant]
     Dosage: 0.5 DF, QD
  2. SYNTHROID [Concomitant]
     Indication: THYROID DISORDER
     Dosage: 40 MG
     Route: 048
  3. AMLODIPINE BESYLATE [Concomitant]
     Dosage: 30 MG, UNK
  4. VITAMINS [Concomitant]
  5. FEMARA [Suspect]
     Indication: BREAST CANCER
     Dosage: 2.5 MG, QD
     Route: 048
     Dates: start: 20091009
  6. HYDROCHLOROTHIAZIDE [Concomitant]
     Dosage: 0.5 MG, QD
  7. SOTALOL [Concomitant]
     Indication: ASTHENIA
     Dosage: 80 MG, BID
  8. ACETAMINOPHEN [Concomitant]

REACTIONS (5)
  - CARDIAC DISORDER [None]
  - MALAISE [None]
  - ACTIVITIES OF DAILY LIVING IMPAIRED [None]
  - FATIGUE [None]
  - SLUGGISHNESS [None]
